FAERS Safety Report 8551659-9 (Version None)
Quarter: 2012Q3

REPORT INFORMATION
  Report Type: 
  Country: None (occurrence: None)
  Receive Date: 20120723
  Receipt Date: 20120723
  Transmission Date: 20120928
  Serious: Yes (Other)
  Sender: FDA-Public Use
  Company Number: None

PATIENT
  Age: 15 Year
  Sex: Male
  Weight: 68.0396 kg

DRUGS (1)
  1. SINGULAIR [Suspect]
     Indication: ASTHMA
     Dosage: 1 PILL DAILY PO
     Route: 048
     Dates: start: 20060101, end: 20090320

REACTIONS (3)
  - SOMNAMBULISM [None]
  - AGGRESSION [None]
  - ABNORMAL BEHAVIOUR [None]
